FAERS Safety Report 4720209-7 (Version None)
Quarter: 2005Q3

REPORT INFORMATION
  Report Type: 
  Country: None (occurrence: None)
  Receive Date: 20050721
  Receipt Date: 20050711
  Transmission Date: 20060218
  Serious: Yes (Other)
  Sender: FDA-Public Use
  Company Number: 2005UW10654

PATIENT
  Age: 86 Year
  Sex: Female
  Weight: 70.5 kg

DRUGS (4)
  1. PRILOSEC OTC [Suspect]
     Indication: REFLUX OESOPHAGITIS
     Route: 048
     Dates: start: 20050704, end: 20050704
  2. PRILOSEC OTC [Suspect]
     Indication: GASTROOESOPHAGEAL REFLUX DISEASE
     Route: 048
     Dates: start: 20050704, end: 20050704
  3. BLOOD PRESSURE MEDICATION [Concomitant]
  4. DIURETIC [Concomitant]

REACTIONS (3)
  - GINGIVAL SWELLING [None]
  - SKIN SWELLING [None]
  - SWOLLEN TONGUE [None]
